FAERS Safety Report 13886285 (Version 3)
Quarter: 2017Q4

REPORT INFORMATION
  Report Type: Report from Study
  Country: None (occurrence: PL)
  Receive Date: 20170821
  Receipt Date: 20171121
  Transmission Date: 20180320
  Serious: Yes (Hospitalization)
  Sender: FDA-Public Use
  Company Number: PL-ABBVIE-17P-129-2070895-00

PATIENT
  Age: 14 Year
  Sex: Female
  Weight: 43 kg

DRUGS (9)
  1. IMURAN [Concomitant]
     Active Substance: AZATHIOPRINE
     Indication: COLITIS ULCERATIVE
     Route: 048
     Dates: start: 20170509
  2. HUMIRA [Suspect]
     Active Substance: ADALIMUMAB
     Dosage: 2.4 MG/KG
     Route: 058
     Dates: start: 20170629, end: 20170629
  3. HUMIRA [Suspect]
     Active Substance: ADALIMUMAB
     Indication: COLITIS ULCERATIVE
     Dosage: 2.4 MG/KG
     Route: 058
     Dates: start: 20170622, end: 20170622
  4. HUMIRA [Suspect]
     Active Substance: ADALIMUMAB
     Dosage: 0.6 MG/KG
     Route: 058
     Dates: start: 20160720, end: 20160720
  5. CITAL [Concomitant]
     Indication: SELECTIVE MUTISM
     Route: 048
     Dates: start: 2016
  6. PENTASA [Concomitant]
     Active Substance: MESALAMINE
     Route: 048
     Dates: start: 20150413
  7. PENTASA [Concomitant]
     Active Substance: MESALAMINE
     Indication: COLITIS ULCERATIVE
     Route: 054
     Dates: start: 20170508, end: 20170510
  8. HUMIRA [Suspect]
     Active Substance: ADALIMUMAB
     Dosage: 1.2 MG/KG
     Route: 058
     Dates: start: 20170703, end: 20170703
  9. HUMIRA [Suspect]
     Active Substance: ADALIMUMAB
     Dosage: 0.6 MG/KG
     Route: 058
     Dates: start: 20170802, end: 20170802

REACTIONS (2)
  - Loss of consciousness [Recovered/Resolved]
  - Headache [Recovered/Resolved]

NARRATIVE: CASE EVENT DATE: 20170812
